FAERS Safety Report 24532801 (Version 1)
Quarter: 2024Q4

REPORT INFORMATION
  Report Type: Spontaneous
  Country: PL (occurrence: PL)
  Receive Date: 20241022
  Receipt Date: 20241022
  Transmission Date: 20250114
  Serious: Yes (Hospitalization, Other)
  Sender: SANDOZ
  Company Number: None

PATIENT
  Age: 1 Year
  Sex: Male
  Weight: 3.3 kg

DRUGS (14)
  1. CYCLOSPORINE [Suspect]
     Active Substance: CYCLOSPORINE
     Indication: Immunosuppressant drug therapy
     Dosage: UNK
     Route: 065
  2. CYCLOSPORINE [Suspect]
     Active Substance: CYCLOSPORINE
     Indication: Immunosuppression
     Dosage: UNK
     Route: 065
  3. CYCLOSPORINE [Suspect]
     Active Substance: CYCLOSPORINE
     Indication: Immunosuppression
     Dosage: UNK
     Route: 065
  4. MYCOPHENOLATE MOFETIL [Suspect]
     Active Substance: MYCOPHENOLATE MOFETIL
     Indication: Heart transplant
     Dosage: 250 MG, BID
     Route: 065
  5. PREDNISONE [Suspect]
     Active Substance: PREDNISONE
     Indication: Dilated cardiomyopathy
     Dosage: 1 X 1 MG, QD
     Route: 065
  6. PREDNISONE [Suspect]
     Active Substance: PREDNISONE
     Indication: Immunosuppressant drug therapy
     Dosage: INITIAL DOSE: 1 X 10 MG, CURRENT: 1 X 1 MG
     Route: 065
  7. PROGRAF [Suspect]
     Active Substance: TACROLIMUS
     Indication: Product used for unknown indication
     Dosage: UNK
     Route: 065
  8. TACROLIMUS [Suspect]
     Active Substance: TACROLIMUS
     Indication: Dilated cardiomyopathy
     Dosage: 2 MILLIGRAM DAILY; CURRENT DOSE
     Route: 048
  9. TACROLIMUS [Suspect]
     Active Substance: TACROLIMUS
     Indication: Herpes virus infection
     Dosage: INITIAL DOSE: 2 X 2 MG, CURRENT: 2 X 1 M
     Route: 065
  10. ACYCLOVIR [Concomitant]
     Active Substance: ACYCLOVIR
     Indication: Product used for unknown indication
     Dosage: UNK
     Route: 065
  11. CAPTOPRIL [Concomitant]
     Active Substance: CAPTOPRIL
     Indication: Product used for unknown indication
     Dosage: UNK
     Route: 065
  12. GAMMAGARD [Concomitant]
     Active Substance: HUMAN IMMUNOGLOBULIN G
     Indication: Product used for unknown indication
     Dosage: UNK
     Route: 065
  13. SPIRONOLACTONE [Concomitant]
     Active Substance: SPIRONOLACTONE
     Indication: Product used for unknown indication
     Dosage: UNK
     Route: 065
  14. TACROLIMUS [Concomitant]
     Active Substance: TACROLIMUS
     Indication: Product used for unknown indication
     Dosage: 10 MG
     Route: 065

REACTIONS (39)
  - Swelling of eyelid [Unknown]
  - Pneumocystis jirovecii infection [Unknown]
  - Skin exfoliation [Unknown]
  - Streptococcal infection [Unknown]
  - Staphylococcal infection [Recovered/Resolved]
  - Enterobacter infection [Unknown]
  - Herpes virus infection [Recovering/Resolving]
  - Gingival oedema [Unknown]
  - Drug resistance [Unknown]
  - Erythema [Unknown]
  - Body mass index decreased [Unknown]
  - Epstein-Barr virus infection [Unknown]
  - Erythema [Recovering/Resolving]
  - Hypocalcaemia [Unknown]
  - Dermatitis atopic [Recovered/Resolved]
  - Perioral dermatitis [Not Recovered/Not Resolved]
  - Klebsiella infection [Unknown]
  - Eczema [Recovered/Resolved]
  - Hypergammaglobulinaemia [Unknown]
  - Morganella infection [Unknown]
  - Superinfection bacterial [Recovered/Resolved]
  - Candida infection [Unknown]
  - Amylase increased [Unknown]
  - Herpes virus infection [Unknown]
  - Hyponatraemia [Unknown]
  - Skin lesion [Unknown]
  - Gingival hypertrophy [Unknown]
  - Hypomagnesaemia [Unknown]
  - Oral mucosal exfoliation [Recovered/Resolved]
  - Food allergy [Unknown]
  - Oral disorder [Not Recovered/Not Resolved]
  - Staphylococcal infection [Recovering/Resolving]
  - Dermatitis exfoliative [Unknown]
  - Stomatitis [Unknown]
  - Hypochromic anaemia [Unknown]
  - Diarrhoea [Unknown]
  - Hirsutism [Unknown]
  - Drug ineffective [Unknown]
  - Drug ineffective [Unknown]
